FAERS Safety Report 11573413 (Version 4)
Quarter: 2015Q4

REPORT INFORMATION
  Report Type: Spontaneous
  Country: DE (occurrence: DE)
  Receive Date: 20150929
  Receipt Date: 20151110
  Transmission Date: 20160304
  Serious: Yes (Other)
  Sender: FDA-Public Use
  Company Number: DE-PFIZER INC-2015316607

PATIENT
  Age: 67 Year
  Sex: Female
  Weight: 74 kg

DRUGS (7)
  1. LYRICA [Suspect]
     Active Substance: PREGABALIN
     Indication: SPINAL CORD OPERATION
     Dosage: 375 MG, DAILY
     Route: 048
     Dates: start: 20050823
  2. LYRICA [Suspect]
     Active Substance: PREGABALIN
     Dosage: UNK
  3. PROPANOL [Suspect]
     Active Substance: PROPRANOLOL HYDROCHLORIDE
     Indication: HYPERTENSION
  4. NITRAZEPAM [Suspect]
     Active Substance: NITRAZEPAM
     Indication: SPINAL COLUMN INJURY
     Dosage: UNK
  5. BLOPRESS [Suspect]
     Active Substance: CANDESARTAN CILEXETIL
     Indication: HYPERTENSION
     Dosage: 4 MG, DAILY
     Route: 048
     Dates: start: 20150919, end: 20150926
  6. DIAZEPAM. [Concomitant]
     Active Substance: DIAZEPAM
     Indication: BRAIN INJURY
     Dosage: UNK
  7. TALINOLOL [Suspect]
     Active Substance: TALINOLOL
     Indication: HYPERTENSION
     Dosage: UNK

REACTIONS (6)
  - Condition aggravated [Unknown]
  - Syncope [Recovered/Resolved]
  - Blood pressure decreased [Recovered/Resolved]
  - Hypertension [Unknown]
  - Seizure [Unknown]
  - Circulatory collapse [Recovered/Resolved]

NARRATIVE: CASE EVENT DATE: 2012
